FAERS Safety Report 12760235 (Version 1)
Quarter: 2016Q3

REPORT INFORMATION
  Report Type: Spontaneous
  Country: IT (occurrence: IT)
  Receive Date: 20160919
  Receipt Date: 20160919
  Transmission Date: 20161109
  Serious: Yes (Life-Threatening)
  Sender: FDA-Public Use
  Company Number: IT-TEVA-692838ACC

PATIENT
  Age: 36 Year
  Sex: Female

DRUGS (3)
  1. PERJETA [Suspect]
     Active Substance: PERTUZUMAB
     Indication: BREAST CANCER
  2. PACLITAXEL. [Suspect]
     Active Substance: PACLITAXEL
     Indication: BREAST CANCER
     Route: 042
  3. HERCEPTIN [Suspect]
     Active Substance: TRASTUZUMAB
     Indication: BREAST CANCER
     Route: 042

REACTIONS (9)
  - Headache [Unknown]
  - Pulmonary toxicity [None]
  - Hypersensitivity [Unknown]
  - Lung infiltration [None]
  - Pyrexia [Unknown]
  - Respiratory distress [Unknown]
  - Lung infiltration [Unknown]
  - Superinfection bacterial [None]
  - Chills [Unknown]
